FAERS Safety Report 17202505 (Version 5)
Quarter: 2020Q1

REPORT INFORMATION
  Report Type: Report from Study
  Country: KR (occurrence: KR)
  Receive Date: 20191226
  Receipt Date: 20200220
  Transmission Date: 20200409
  Serious: Yes (Hospitalization)
  Sender: FDA-Public Use
  Company Number: KR-EISAI MEDICAL RESEARCH-EC-2019-067521

PATIENT
  Age: 78 Year
  Sex: Male
  Weight: 66 kg

DRUGS (24)
  1. LENVATINIB [Suspect]
     Active Substance: LENVATINIB
     Route: 048
     Dates: start: 20191129, end: 20191218
  2. LENVATINIB [Suspect]
     Active Substance: LENVATINIB
     Route: 048
     Dates: start: 20200103, end: 20200112
  3. CARVEDILOL. [Concomitant]
     Active Substance: CARVEDILOL
  4. CANDESARTAN. [Concomitant]
     Active Substance: CANDESARTAN
  5. HUMULIN NOS [Concomitant]
     Active Substance: INSULIN HUMAN
  6. EVEROLIMUS. [Suspect]
     Active Substance: EVEROLIMUS
     Indication: RENAL CELL CARCINOMA
     Route: 048
     Dates: start: 20190528, end: 20191218
  7. BENZYDAMINE [Concomitant]
     Active Substance: BENZYDAMINE
  8. SK ALBUMIN [Concomitant]
  9. CA GLUCONATE [Concomitant]
     Active Substance: CALCIUM GLUCONATE
  10. FINASTERIDE. [Concomitant]
     Active Substance: FINASTERIDE
  11. TAMSULOSIN [Concomitant]
     Active Substance: TAMSULOSIN
  12. TRAMADOL. [Concomitant]
     Active Substance: TRAMADOL
  13. LEVOTHYROXINE. [Concomitant]
     Active Substance: LEVOTHYROXINE
  14. AMLODIPINE [Concomitant]
     Active Substance: AMLODIPINE BESYLATE
  15. LASIX [Concomitant]
     Active Substance: FUROSEMIDE
  16. ROSUVASTATIN. [Concomitant]
     Active Substance: ROSUVASTATIN
  17. SPIRONOLACTONE. [Concomitant]
     Active Substance: SPIRONOLACTONE
  18. ASPIRIN. [Concomitant]
     Active Substance: ASPIRIN
  19. RABEPRAZOLE [Concomitant]
     Active Substance: RABEPRAZOLE
     Route: 048
  20. HARMONILAN [Concomitant]
  21. LENVATINIB [Suspect]
     Active Substance: LENVATINIB
     Indication: RENAL CELL CARCINOMA
     Route: 048
     Dates: start: 20190528, end: 20190702
  22. LENVATINIB [Suspect]
     Active Substance: LENVATINIB
     Route: 048
     Dates: start: 20191029, end: 20191114
  23. METFORMIN ER [Concomitant]
     Active Substance: METFORMIN HYDROCHLORIDE
  24. LENVATINIB [Suspect]
     Active Substance: LENVATINIB
     Route: 048
     Dates: start: 20190730, end: 20191014

REACTIONS (2)
  - Decreased appetite [Recovering/Resolving]
  - Cardiac failure acute [Recovering/Resolving]

NARRATIVE: CASE EVENT DATE: 20191216
